FAERS Safety Report 7306827-0 (Version None)
Quarter: 2011Q1

REPORT INFORMATION
  Report Type: 
  Country: None (occurrence: None)
  Receive Date: 20110223
  Receipt Date: 20110221
  Transmission Date: 20110831
  Serious: Yes (Hospitalization)
  Sender: FDA-Public Use
  Company Number: US-ASTRAZENECA-2007UW12326

PATIENT
  Age: 18443 Day
  Sex: Female
  Weight: 108.9 kg

DRUGS (46)
  1. SEROQUEL [Suspect]
     Route: 048
     Dates: start: 20030101, end: 20070101
  2. SEROQUEL [Suspect]
     Route: 048
     Dates: start: 20031111
  3. COLACE [Concomitant]
     Dates: start: 20040216
  4. WELLBUTRIN XL [Concomitant]
     Indication: INSOMNIA
     Dosage: 300 MG DAILY
     Dates: start: 20031111
  5. CRESTOR [Concomitant]
     Dates: start: 20091123
  6. CALTRATE [Concomitant]
     Dates: start: 20091123
  7. SEROQUEL [Suspect]
     Route: 048
     Dates: start: 20030101, end: 20070101
  8. SEROQUEL [Suspect]
     Route: 048
     Dates: start: 20031111
  9. SEROQUEL [Suspect]
     Route: 048
     Dates: start: 20031111
  10. WELLBUTRIN XL [Concomitant]
     Indication: DEPRESSION
     Dosage: 300 MG DAILY
     Dates: start: 20031111
  11. ZANAFLEX [Concomitant]
     Dates: start: 20040719
  12. CRESTOR [Concomitant]
     Dosage: 10 MG DAILY
     Dates: start: 20041221
  13. TOPAMAX [Concomitant]
     Dosage: 50-200 MG
     Dates: start: 20041221
  14. CLINORIL [Concomitant]
     Dates: start: 20030101
  15. SEROQUEL [Suspect]
     Route: 048
     Dates: start: 20031111
  16. SEROQUEL [Suspect]
     Route: 048
     Dates: start: 20031111
  17. LISINOPRIL AND HYDROCHLOROTHIAZIDE [Concomitant]
     Indication: HYPERTENSION
     Dosage: 20/25, 1 DAILY
     Dates: start: 20031111
  18. DICLOFENAC SODIUM [Concomitant]
     Dosage: 50 MG TWICE DAILY
     Dates: start: 20091123
  19. PRILOSEC [Concomitant]
     Dosage: 20 MG DAILY
     Dates: start: 20040719
  20. ATIVAN [Concomitant]
     Indication: ANXIETY
     Dates: start: 20091123
  21. SEROQUEL [Suspect]
     Indication: BIPOLAR DISORDER
     Route: 048
     Dates: start: 20020101, end: 20060808
  22. SEROQUEL [Suspect]
     Route: 048
     Dates: start: 20030101, end: 20070101
  23. SEROQUEL [Suspect]
     Route: 048
     Dates: start: 20031111
  24. SEROQUEL [Suspect]
     Route: 048
     Dates: start: 20031111
  25. SEROQUEL [Suspect]
     Route: 048
     Dates: start: 20031111
  26. BUSPAR [Concomitant]
     Indication: INSOMNIA
     Dates: start: 20031111
  27. WELLBUTRIN XL [Concomitant]
     Dates: start: 20030101
  28. CELEXA [Concomitant]
     Dates: start: 20091123
  29. SEROQUEL [Suspect]
     Indication: DEPRESSION
     Route: 048
     Dates: start: 20020101, end: 20060808
  30. SEROQUEL [Suspect]
     Route: 048
     Dates: start: 20031111
  31. LEXAPRO [Concomitant]
     Indication: DEPRESSION
     Dosage: 10 MG DAILY
     Dates: start: 20040401
  32. WELLBUTRIN XL [Concomitant]
     Dates: start: 20030101
  33. AMITRIPTYLINE [Concomitant]
     Dates: start: 20091123
  34. SEROQUEL [Suspect]
     Indication: AFFECTIVE DISORDER
     Route: 048
     Dates: start: 20020101, end: 20060808
  35. DICLOFENAC SODIUM [Concomitant]
     Dates: start: 20040318
  36. ALLOPURINOL [Concomitant]
     Dosage: 300 MG DAILY
     Dates: start: 20040401
  37. BUSPAR [Concomitant]
     Indication: DEPRESSION
     Dates: start: 20031111
  38. NEURONTIN [Concomitant]
     Dosage: 600-2400 MG
     Dates: start: 20040617
  39. RANITIDINE [Concomitant]
     Dates: start: 20091123
  40. SEROQUEL [Suspect]
     Indication: INSOMNIA
     Route: 048
     Dates: start: 20020101, end: 20060808
  41. SEROQUEL [Suspect]
     Route: 048
     Dates: start: 20030101, end: 20070101
  42. NAPROSYN [Concomitant]
  43. SEROQUEL [Suspect]
     Indication: SLEEP DISORDER
     Route: 048
     Dates: start: 20020101, end: 20060808
  44. SEROQUEL [Suspect]
     Route: 048
     Dates: start: 20030101, end: 20070101
  45. SEROQUEL [Suspect]
     Route: 048
     Dates: start: 20031111
  46. LEXAPRO [Concomitant]
     Indication: INSOMNIA
     Dosage: 10 MG DAILY
     Dates: start: 20040401

REACTIONS (6)
  - OBESITY [None]
  - TYPE 2 DIABETES MELLITUS [None]
  - CHRONIC OBSTRUCTIVE PULMONARY DISEASE [None]
  - BRONCHITIS [None]
  - ACUTE RESPIRATORY FAILURE [None]
  - PNEUMONIA [None]
